FAERS Safety Report 12203320 (Version 1)
Quarter: 2016Q1

REPORT INFORMATION
  Report Type: Spontaneous
  Country: US (occurrence: None)
  Receive Date: 20160321
  Receipt Date: 20160321
  Transmission Date: 20160526
  Serious: Yes (Other)
  Sender: FDA-Public Use
  Company Number: None

PATIENT
  Age: 47 Year
  Sex: Female

DRUGS (1)
  1. HYDROMORPHONE 1 MG [Suspect]
     Active Substance: HYDROMORPHONE
     Route: 042

REACTIONS (1)
  - Depressed level of consciousness [None]

NARRATIVE: CASE EVENT DATE: 20150105
